FAERS Safety Report 23995144 (Version 1)
Quarter: 2024Q2

REPORT INFORMATION
  Report Type: Spontaneous
  Country: US (occurrence: None)
  Receive Date: 20240619
  Receipt Date: 20240619
  Transmission Date: 20240716
  Serious: Yes (Disabling, Other)
  Sender: FDA-Public Use
  Company Number: None

PATIENT
  Age: 62 Year
  Sex: Female
  Weight: 82.8 kg

DRUGS (1)
  1. RINVOQ [Suspect]
     Active Substance: UPADACITINIB
     Indication: Crohn^s disease
     Dosage: 1 TABLET DAILY ORAL
     Route: 048
     Dates: start: 20240115, end: 20240605

REACTIONS (2)
  - Red blood cell count decreased [None]
  - Bone marrow disorder [None]

NARRATIVE: CASE EVENT DATE: 20240619
